FAERS Safety Report 6152409-6 (Version None)
Quarter: 2009Q2

REPORT INFORMATION
  Report Type: 
  Country: None (occurrence: None)
  Receive Date: 20090409
  Receipt Date: 20090327
  Transmission Date: 20091009
  Serious: Yes (Hospitalization)
  Sender: FDA-Public Use
  Company Number: POMP-1000487

PATIENT
  Age: 2 Year
  Sex: Male
  Weight: 13 kg

DRUGS (7)
  1. MYOZYME [Suspect]
     Indication: GLYCOGEN STORAGE DISEASE TYPE II
     Dosage: 20 MG/KG; 30 MG/KG; 40 MG/KG, Q2W, INTRAVENOUS
     Route: 042
     Dates: start: 20060911, end: 20070501
  2. MYOZYME [Suspect]
     Indication: GLYCOGEN STORAGE DISEASE TYPE II
     Dosage: 20 MG/KG; 30 MG/KG; 40 MG/KG, Q2W, INTRAVENOUS
     Route: 042
     Dates: start: 20070509, end: 20070701
  3. MYOZYME [Suspect]
     Indication: GLYCOGEN STORAGE DISEASE TYPE II
     Dosage: 20 MG/KG; 30 MG/KG; 40 MG/KG, Q2W, INTRAVENOUS
     Route: 042
     Dates: start: 20070801
  4. VENOFER [Suspect]
     Indication: ANAEMIA
     Dosage: INTRAVENOUS
     Route: 042
     Dates: start: 20070201
  5. BENADRYL [Concomitant]
  6. SOLU-CORTEF [Concomitant]
  7. ACETAMINOPHEN [Concomitant]

REACTIONS (11)
  - ANAEMIA [None]
  - BLOOD CULTURE POSITIVE [None]
  - CENTRAL LINE INFECTION [None]
  - FALL [None]
  - GASTROENTERITIS VIRAL [None]
  - PYREXIA [None]
  - RETCHING [None]
  - STAPHYLOCOCCAL INFECTION [None]
  - TRACHEOBRONCHITIS [None]
  - UPPER LIMB FRACTURE [None]
  - VOMITING [None]
